FAERS Safety Report 9603703 (Version 1)
Quarter: 2013Q4

REPORT INFORMATION
  Report Type: Spontaneous
  Country: GB (occurrence: GB)
  Receive Date: 20131007
  Receipt Date: 20131007
  Transmission Date: 20140711
  Serious: Yes (Other)
  Sender: FDA-Public Use
  Company Number: PHHY2013GB110965

PATIENT
  Age: 19 Year
  Sex: Female

DRUGS (1)
  1. VALPROIC ACID [Suspect]
     Indication: GRAND MAL CONVULSION

REACTIONS (2)
  - Mobility decreased [Unknown]
  - Drug ineffective [Unknown]
